FAERS Safety Report 4318745-0 (Version None)
Quarter: 2004Q1

REPORT INFORMATION
  Report Type: 
  Country: None (occurrence: None)
  Receive Date: 20040315
  Receipt Date: 20040302
  Transmission Date: 20041129
  Serious: Yes (Other)
  Sender: FDA-Public Use
  Company Number: 2004202701US

PATIENT
  Age: 74 Year

DRUGS (2)
  1. HEPARIN SODIUM INJECTION [Suspect]
  2. WARFARIN SODIUM [Suspect]

REACTIONS (6)
  - DIALYSIS [None]
  - HAEMORRHAGE [None]
  - HEPATIC FUNCTION ABNORMAL [None]
  - HYPERBILIRUBINAEMIA [None]
  - IMPAIRED HEALING [None]
  - RENAL IMPAIRMENT [None]
